FAERS Safety Report 7811863-1 (Version None)
Quarter: 2011Q4

REPORT INFORMATION
  Report Type: 
  Country: None (occurrence: None)
  Receive Date: 20111013
  Receipt Date: 20110928
  Transmission Date: 20120403
  Serious: Yes (Other)
  Sender: FDA-Public Use
  Company Number: PHHY2011BR86744

PATIENT
  Age: 35 Year
  Sex: Female
  Weight: 104 kg

DRUGS (2)
  1. DIOVAN [Suspect]
     Indication: HYPERTENSION
     Dosage: 160 MG, PER DAY
     Dates: start: 20110501
  2. DIOVAN [Suspect]
     Dosage: 320 MG, PER DAY
     Dates: start: 20110701

REACTIONS (3)
  - VENTRICULAR ARRHYTHMIA [None]
  - BLOOD PRESSURE INADEQUATELY CONTROLLED [None]
  - VENTRICULAR TACHYCARDIA [None]
